FAERS Safety Report 9679015 (Version 1)
Quarter: 2013Q4

REPORT INFORMATION
  Report Type: Spontaneous
  Country: US (occurrence: None)
  Receive Date: 20131107
  Receipt Date: 20131107
  Transmission Date: 20140711
  Serious: Yes (Life-Threatening, Hospitalization)
  Sender: FDA-Public Use
  Company Number: 2013/199

PATIENT
  Age: 31 Year
  Sex: Female

DRUGS (3)
  1. OLANZAPINE [Suspect]
     Indication: AGITATION
     Dosage: AVARAGE DAILY DOSE OF 4 MG IV
     Route: 042
  2. HALOPERIDOL [Suspect]
  3. HYDROMORPHONE [Concomitant]

REACTIONS (3)
  - Torsade de pointes [None]
  - Abdominal pain [None]
  - Drug withdrawal syndrome [None]
